FAERS Safety Report 15652669 (Version 1)
Quarter: 2018Q4

REPORT INFORMATION
  Report Type: Spontaneous
  Country: US (occurrence: US)
  Receive Date: 20181123
  Receipt Date: 20181123
  Transmission Date: 20190205
  Serious: Yes (Other)
  Sender: FDA-Public Use
  Company Number: US-NOVOPROD-579859

PATIENT
  Age: 67 Year
  Sex: Male
  Weight: 77 kg

DRUGS (4)
  1. LEVEMIR [Concomitant]
     Active Substance: INSULIN DETEMIR
     Dosage: 15 -20 U AT NIGHT, DAILY
     Route: 065
  2. NOVOLOG [Suspect]
     Active Substance: INSULIN ASPART
     Dosage: 20 U, QD
     Route: 058
  3. NOVOLOG [Suspect]
     Active Substance: INSULIN ASPART
     Indication: TYPE 2 DIABETES MELLITUS
     Dosage: UNK
     Route: 058
     Dates: start: 2015
  4. METFORMIN [Concomitant]
     Active Substance: METFORMIN HYDROCHLORIDE
     Indication: TYPE 2 DIABETES MELLITUS
     Dosage: 850 MG, TID

REACTIONS (3)
  - Device issue [Unknown]
  - Hypoglycaemic unconsciousness [Recovering/Resolving]
  - Hypoglycaemic seizure [Recovering/Resolving]

NARRATIVE: CASE EVENT DATE: 2015
